FAERS Safety Report 7411037-2 (Version None)
Quarter: 2011Q2

REPORT INFORMATION
  Report Type: 
  Country: None (occurrence: None)
  Receive Date: 20110405
  Receipt Date: 20110317
  Transmission Date: 20111010
  Serious: Yes (Death)
  Sender: FDA-Public Use
  Company Number: 2011P1005303

PATIENT
  Age: 40 Year
  Sex: Male

DRUGS (11)
  1. ACETAMINOPHEN/HYDROCODONE (NO PREF. NAME) [Suspect]
     Dosage: ; PO
     Route: 048
  2. GLYBURIDE [Suspect]
     Dosage: ; PO
     Route: 048
  3. NISOLDIPINE (NO PREF. NAME) [Suspect]
     Dosage: ; PO
     Route: 048
  4. LEVOTHYROXINE (NO PREF. NAME) [Suspect]
     Dosage: ; PO
     Route: 048
  5. CLOPIDOGREL [Suspect]
     Dosage: ; PO
     Route: 048
  6. ENALAPRIL (NO PREF. NAME) [Suspect]
     Dosage: ; PO
     Route: 048
  7. HYDRALAZINE HCL [Suspect]
     Dosage: ; PO
     Route: 048
  8. AMLODIPINE [Suspect]
     Dosage: ; PO
     Route: 048
  9. FUROSEMIDE [Suspect]
     Dosage: ; PO
     Route: 048
  10. TAMSULOSIN (NO PREF. NAME) [Suspect]
     Dosage: ; PO
     Route: 048
  11. SIMVASTATIN [Suspect]
     Dosage: ; PO
     Route: 048

REACTIONS (1)
  - COMPLETED SUICIDE [None]
